FAERS Safety Report 9627124 (Version 2)
Quarter: 2013Q4

REPORT INFORMATION
  Report Type: Spontaneous
  Country: US (occurrence: None)
  Receive Date: 20131011
  Receipt Date: 20131021
  Transmission Date: 20140711
  Serious: Yes (Life-Threatening, Hospitalization, Disabling, Other)
  Sender: FDA-Public Use
  Company Number: ACO_38808_2013

PATIENT
  Age: 51 Year
  Sex: Male

DRUGS (5)
  1. ZANAFLEX [Suspect]
     Indication: MUSCLE SPASMS
     Dates: start: 20110812
  2. CIPRO [Suspect]
     Indication: COLON INJURY
  3. LUNESTA [Concomitant]
  4. OXYCONTIN (OXYCODONE HYDROCHLORIDE) [Concomitant]
  5. PREVACID (LANSOPRAZOLE) [Concomitant]

REACTIONS (16)
  - Myocardial infarction [None]
  - Labelled drug-drug interaction medication error [None]
  - Cardiac arrest [None]
  - Renal failure acute [None]
  - Blood pressure decreased [None]
  - Anoxia [None]
  - Amnesia [None]
  - Brain injury [None]
  - Renal failure chronic [None]
  - Colon injury [None]
  - Chest pain [None]
  - Gastric infection [None]
  - Gait disturbance [None]
  - Balance disorder [None]
  - Impaired driving ability [None]
  - Asthenia [None]
